FAERS Safety Report 6898257-0 (Version None)
Quarter: 2010Q3

REPORT INFORMATION
  Report Type: 
  Country: None (occurrence: None)
  Receive Date: 20100802
  Receipt Date: 20070926
  Transmission Date: 20110219
  Serious: No
  Sender: FDA-Public Use
  Company Number: US-PFIZER INC-2007081631

PATIENT
  Sex: Female
  Weight: 50 kg

DRUGS (5)
  1. LYRICA [Suspect]
     Indication: FIBROMYALGIA
     Dates: start: 20070822
  2. EFFEXOR [Interacting]
     Indication: NEURALGIA
  3. ALL OTHER THERAPEUTIC PRODUCTS [Concomitant]
  4. TRAZODONE [Concomitant]
     Indication: SLEEP DISORDER
  5. HYDROCODONE BITARTRATE [Concomitant]

REACTIONS (7)
  - DRUG INTERACTION [None]
  - EXPIRED DRUG ADMINISTERED [None]
  - HYPOAESTHESIA [None]
  - INADEQUATE ANALGESIA [None]
  - MALAISE [None]
  - NAUSEA [None]
  - SOMNOLENCE [None]
